FAERS Safety Report 5650621-3 (Version None)
Quarter: 2008Q1

REPORT INFORMATION
  Report Type: 
  Country: None (occurrence: None)
  Receive Date: 20080303
  Receipt Date: 20080222
  Transmission Date: 20080703
  Serious: Yes (Life-Threatening, Hospitalization)
  Sender: FDA-Public Use
  Company Number: GXKR2008GB01960

PATIENT
  Sex: Male

DRUGS (1)
  1. AMOXICILLIN-CLAVULANIC ACID (NGX)(AMOXICILLIN, CLAVULANATE) UNKNOWN [Suspect]
     Indication: TOE AMPUTATION
     Dosage: 10 ML, TID, ORAL
     Route: 048
     Dates: start: 20080124, end: 20080127

REACTIONS (7)
  - MYOCARDIAL INFARCTION [None]
  - OEDEMA PERIPHERAL [None]
  - PRURITUS [None]
  - SKIN DISORDER [None]
  - SWOLLEN TONGUE [None]
  - THROAT TIGHTNESS [None]
  - TREMOR [None]
